FAERS Safety Report 6887205-5 (Version None)
Quarter: 2010Q3

REPORT INFORMATION
  Report Type: 
  Country: None (occurrence: None)
  Receive Date: 20100730
  Receipt Date: 20100726
  Transmission Date: 20110219
  Serious: Yes (Hospitalization)
  Sender: FDA-Public Use
  Company Number: US-GILEAD-2010-0029977

PATIENT
  Sex: Female

DRUGS (18)
  1. LETAIRIS [Suspect]
     Indication: PULMONARY ARTERIAL HYPERTENSION
     Route: 048
     Dates: start: 20080103
  2. TORSEMIDE [Concomitant]
  3. ISOSORBIDE MONO [Concomitant]
  4. TOPROL-XL [Concomitant]
  5. ADVAIR DISKUS 100/50 [Concomitant]
  6. SPIRIVA [Concomitant]
  7. MEDROL [Concomitant]
  8. PLAVIX [Concomitant]
  9. ASPIRIN [Concomitant]
  10. LEVOTHYROXINE SODIUM [Concomitant]
  11. ALLOPURINOL [Concomitant]
  12. PROTONIX [Concomitant]
  13. COLACE [Concomitant]
  14. AMBIEN CR [Concomitant]
  15. CLONAZEPAM [Concomitant]
  16. ACETAMINOPHEN [Concomitant]
  17. IRON DEXTRAN [Concomitant]
  18. KLOR-CON [Concomitant]

REACTIONS (1)
  - HEART RATE DECREASED [None]
